FAERS Safety Report 20254053 (Version 2)
Quarter: 2022Q1

REPORT INFORMATION
  Report Type: Report from Study
  Country: US (occurrence: US)
  Receive Date: 20211230
  Receipt Date: 20220124
  Transmission Date: 20220424
  Serious: Yes (Hospitalization, Other)
  Sender: FDA-Public Use
  Company Number: US-GILEAD-2021-0562856

PATIENT
  Age: 65 Year
  Sex: Female

DRUGS (1)
  1. AZTREONAM LYSINE [Suspect]
     Active Substance: AZTREONAM LYSINE
     Indication: Lung transplant
     Dosage: 75 MG, TID
     Route: 055
     Dates: start: 202108

REACTIONS (3)
  - Pneumonia [Recovered/Resolved]
  - Pneumonia [Unknown]
  - Off label use [Not Recovered/Not Resolved]
